FAERS Safety Report 17122383 (Version 3)
Quarter: 2020Q1

REPORT INFORMATION
  Report Type: Spontaneous
  Country: US (occurrence: US)
  Receive Date: 20191206
  Receipt Date: 20200227
  Transmission Date: 20200409
  Serious: No
  Sender: FDA-Public Use
  Company Number: US-VERTEX PHARMACEUTICALS-2019-011938

PATIENT
  Age: 19 Year
  Sex: Female

DRUGS (16)
  1. COLISTIN [Concomitant]
     Active Substance: COLISTIN
     Route: 055
  2. LANTUS [Concomitant]
     Active Substance: INSULIN GLARGINE
  3. VITAMIN A [RETINOL] [Concomitant]
     Active Substance: RETINOL
  4. VITAMIN D [COLECALCIFEROL] [Concomitant]
     Active Substance: CHOLECALCIFEROL
  5. HYPERTONIC SALINE SOLUTION [Concomitant]
     Active Substance: SODIUM CHLORIDE
     Route: 055
  6. ESTROGEN [Suspect]
     Active Substance: ESTROGENS
     Indication: MENSTRUATION IRREGULAR
     Dosage: UNK
     Route: 065
     Dates: end: 20191122
  7. TRIKAFTA [Suspect]
     Active Substance: ELEXACAFTOR\IVACAFTOR\TEZACAFTOR
     Indication: CYSTIC FIBROSIS
     Dosage: 2 TABS OF ELEXA 100 MG, TEZA 50 MG, IVA 75 MG AM; 1 TAB OF IVA 150 MG PM
     Route: 048
     Dates: start: 201911
  8. ALBUTEROL [SALBUTAMOL] [Concomitant]
     Active Substance: ALBUTEROL
  9. NOVOLOG [Concomitant]
     Active Substance: INSULIN ASPART
  10. LACTOBACILLUS [Concomitant]
     Active Substance: LACTOBACILLUS ACIDOPHILUS
  11. VITAMIN E [Concomitant]
     Active Substance: .ALPHA.-TOCOPHEROL
  12. NORETHINDRONE ACETATE. [Concomitant]
     Active Substance: NORETHINDRONE ACETATE
  13. AZITHROMYCIN ANHYDROUS. [Concomitant]
     Active Substance: AZITHROMYCIN ANHYDROUS
  14. BUDESONIDE;FORMOTEROL [Concomitant]
     Active Substance: BUDESONIDE\FORMOTEROL
  15. PULMOZYME [Concomitant]
     Active Substance: DORNASE ALFA
  16. CREON [Concomitant]
     Active Substance: PANCRELIPASE AMYLASE\PANCRELIPASE LIPASE\PANCRELIPASE PROTEASE

REACTIONS (1)
  - Rash papular [Recovered/Resolved]

NARRATIVE: CASE EVENT DATE: 20191121
